FAERS Safety Report 11717943 (Version 1)
Quarter: 2015Q4

REPORT INFORMATION
  Report Type: Spontaneous
  Country: US (occurrence: None)
  Receive Date: 20151109
  Receipt Date: 20151109
  Transmission Date: 20160304
  Serious: Yes (Disabling)
  Sender: FDA-Public Use
  Company Number: None

PATIENT
  Age: 52 Year
  Sex: Male
  Weight: 77.11 kg

DRUGS (5)
  1. VITAMIN B12 [Concomitant]
     Active Substance: CYANOCOBALAMIN
  2. MAGNESIUM MALATE [Concomitant]
  3. LEVAQUIN [Suspect]
     Active Substance: LEVOFLOXACIN
     Indication: PNEUMONIA
     Route: 048
     Dates: start: 20150921, end: 20150930
  4. FOLIC ACID. [Concomitant]
     Active Substance: FOLIC ACID
  5. LEVAQUIN [Suspect]
     Active Substance: LEVOFLOXACIN
     Indication: BRONCHITIS
     Route: 048
     Dates: start: 20150921, end: 20150930

REACTIONS (4)
  - Pain in extremity [None]
  - Pain [None]
  - Musculoskeletal pain [None]
  - Muscle spasms [None]

NARRATIVE: CASE EVENT DATE: 20151007
